FAERS Safety Report 15580361 (Version 1)
Quarter: 2018Q4

REPORT INFORMATION
  Report Type: Spontaneous
  Country: CN (occurrence: CN)
  Receive Date: 20181102
  Receipt Date: 20181102
  Transmission Date: 20190205
  Serious: Yes (Other)
  Sender: FDA-Public Use
  Company Number: CN-BAYER-2018-198693

PATIENT
  Age: 49 Year
  Sex: Female

DRUGS (4)
  1. CAPECITABINE. [Concomitant]
     Active Substance: CAPECITABINE
     Dosage: 1500 MG, BID
     Dates: start: 201809
  2. BEVACIZUMAB. [Concomitant]
     Active Substance: BEVACIZUMAB
     Dosage: 600 MG, QD
     Dates: start: 201809
  3. STIVARGA [Suspect]
     Active Substance: REGORAFENIB
     Indication: COLON CANCER
     Dosage: 160 MG, QD
     Route: 048
     Dates: start: 20180205
  4. OXALIPLATIN. [Concomitant]
     Active Substance: OXALIPLATIN
     Dosage: 200 MG, QD
     Dates: start: 201809

REACTIONS (3)
  - Palmar-plantar erythrodysaesthesia syndrome [None]
  - Hypertension [None]
  - Hepatic mass [None]

NARRATIVE: CASE EVENT DATE: 2018
